FAERS Safety Report 4568685-7 (Version None)
Quarter: 2005Q1

REPORT INFORMATION
  Report Type: 
  Country: None (occurrence: None)
  Receive Date: 20050202
  Receipt Date: 20050201
  Transmission Date: 20050727
  Serious: Yes (Life-Threatening, Hospitalization)
  Sender: FDA-Public Use
  Company Number: CA-MERCK-0501CAN00140

PATIENT
  Age: 62 Year
  Sex: Male

DRUGS (5)
  1. PROSCAR [Suspect]
     Indication: BENIGN PROSTATIC HYPERPLASIA
     Route: 048
  2. TAMSULOSIN HYDROCHLORIDE [Concomitant]
     Indication: BENIGN PROSTATIC HYPERPLASIA
     Route: 048
  3. ATENOLOL [Concomitant]
     Indication: HYPERTENSION
     Route: 065
     Dates: start: 19990101
  4. ATORVASTATIN CALCIUM [Concomitant]
     Indication: HYPERCHOLESTEROLAEMIA
     Route: 065
     Dates: start: 19980101
  5. ASPIRIN [Concomitant]
     Indication: PROPHYLAXIS
     Route: 065
     Dates: start: 19990101, end: 20041230

REACTIONS (1)
  - INTESTINAL ISCHAEMIA [None]
